FAERS Safety Report 9736166 (Version 1)
Quarter: 2013Q4

REPORT INFORMATION
  Report Type: Report from Study
  Country: ES (occurrence: ES)
  Receive Date: 20131206
  Receipt Date: 20131206
  Transmission Date: 20140711
  Serious: Yes (Other)
  Sender: FDA-Public Use
  Company Number: ES-ROCHE-1309458

PATIENT
  Age: 49 Year
  Sex: Male

DRUGS (2)
  1. MYCOPHENOLATE MOFETIL [Suspect]
     Indication: RENAL TRANSPLANT
     Route: 065
  2. TACROLIMUS [Concomitant]

REACTIONS (2)
  - Staphylococcal infection [Recovering/Resolving]
  - Ureteral necrosis [Recovering/Resolving]
